FAERS Safety Report 14468228 (Version 1)
Quarter: 2018Q1

REPORT INFORMATION
  Report Type: Spontaneous
  Country: IL (occurrence: IL)
  Receive Date: 20180131
  Receipt Date: 20180131
  Transmission Date: 20180509
  Serious: Yes (Other)
  Sender: FDA-Public Use
  Company Number: IL-ACTELION-A-CH2018-166287

PATIENT
  Age: 74 Year
  Sex: Female

DRUGS (11)
  1. AMLODIPINE [Concomitant]
     Active Substance: AMLODIPINE BESYLATE
  2. SYMBICORT [Concomitant]
     Active Substance: BUDESONIDE\FORMOTEROL FUMARATE DIHYDRATE
  3. MICROPIRIN [Concomitant]
     Active Substance: ASPIRIN
  4. OPSUMIT [Suspect]
     Active Substance: MACITENTAN
     Indication: PULMONARY ARTERIAL HYPERTENSION
     Dosage: 10 MG, QD
     Route: 048
     Dates: start: 20180114, end: 20180118
  5. BISOPROLOL [Concomitant]
     Active Substance: BISOPROLOL
  6. VABEN [Concomitant]
     Active Substance: OXAZEPAM
  7. LAXADIN [Concomitant]
     Active Substance: BISACODYL
  8. VALSARTAN. [Concomitant]
     Active Substance: VALSARTAN
  9. FUSID [Concomitant]
     Active Substance: FUROSEMIDE
  10. LITORVA [Concomitant]
     Active Substance: ATORVASTATIN CALCIUM
  11. CONTROLOC [Concomitant]
     Active Substance: PANTOPRAZOLE SODIUM

REACTIONS (2)
  - Suffocation feeling [Recovered/Resolved]
  - Dyspnoea [Recovered/Resolved]

NARRATIVE: CASE EVENT DATE: 20180114
